FAERS Safety Report 9876505 (Version 2)
Quarter: 2014Q1

REPORT INFORMATION
  Report Type: Other
  Country: US (occurrence: US)
  Receive Date: 20140206
  Receipt Date: 20140206
  Transmission Date: 20141002
  Serious: No
  Sender: FDA-Public Use
  Company Number: US-ACORDA-ACO_38112_2013

PATIENT
  Age: 41 Year
  Sex: Female
  Weight: 74.83 kg

DRUGS (7)
  1. AMPYRA [Suspect]
     Indication: GAIT DISTURBANCE
     Dosage: 10 MG, Q 12 HRS
     Route: 048
     Dates: start: 2013
  2. ALL OTHER THERAPEUTIC PRODUCTS [Concomitant]
     Indication: MULTIPLE SCLEROSIS
     Dosage: UNK
  3. BACLOFEN [Concomitant]
     Indication: MUSCLE SPASTICITY
     Dosage: 10 MG, TID
     Route: 048
  4. BUPROPION [Concomitant]
     Indication: DEPRESSION
     Dosage: 150 MG, BID
     Route: 048
  5. LYRICA [Concomitant]
     Indication: NEURALGIA
     Dosage: 75 MG, BID
     Route: 048
  6. TYSABRI [Concomitant]
     Indication: MULTIPLE SCLEROSIS
     Dosage: 300 MG, MONTHLY
     Route: 042
  7. SERTRALINE HCL [Concomitant]
     Indication: DEPRESSION
     Dosage: 50 MG, QD
     Route: 048

REACTIONS (2)
  - Vaginal odour [Recovered/Resolved]
  - Nasopharyngitis [Unknown]
